FAERS Safety Report 14214800 (Version 1)
Quarter: 2017Q4

REPORT INFORMATION
  Report Type: Spontaneous
  Country: US (occurrence: US)
  Receive Date: 20171122
  Receipt Date: 20171122
  Transmission Date: 20180321
  Serious: No
  Sender: FDA-Public Use
  Company Number: US-ROCHE-1919108

PATIENT
  Sex: Female
  Weight: 69.46 kg

DRUGS (6)
  1. HERCEPTIN [Suspect]
     Active Substance: TRASTUZUMAB
     Indication: HER-2 POSITIVE BREAST CANCER
     Route: 042
  2. ARIMIDEX [Suspect]
     Active Substance: ANASTROZOLE
     Indication: HER-2 POSITIVE BREAST CANCER
     Dosage: BY MOUTH
     Route: 065
  3. FEMARA [Suspect]
     Active Substance: LETROZOLE
     Indication: HER-2 POSITIVE BREAST CANCER
     Route: 065
  4. ADRIAMYCIN [Suspect]
     Active Substance: DOXORUBICIN HYDROCHLORIDE
     Indication: HER-2 POSITIVE BREAST CANCER
     Route: 065
  5. AROMASIN [Suspect]
     Active Substance: EXEMESTANE
     Indication: HER-2 POSITIVE BREAST CANCER
     Route: 065
  6. XARELTO [Concomitant]
     Active Substance: RIVAROXABAN
     Route: 065
     Dates: start: 2008

REACTIONS (14)
  - Anxiety [Unknown]
  - Fatigue [Unknown]
  - Anaemia [Recovered/Resolved]
  - Headache [Not Recovered/Not Resolved]
  - Lethargy [Unknown]
  - Deep vein thrombosis [Recovered/Resolved]
  - Weight increased [Not Recovered/Not Resolved]
  - Depression [Unknown]
  - Neuropathy peripheral [Unknown]
  - Arthralgia [Unknown]
  - Alopecia [Unknown]
  - Weight decreased [Unknown]
  - White blood cell count decreased [Unknown]
  - Stomatitis [Unknown]
